FAERS Safety Report 5170430-1 (Version None)
Quarter: 2006Q4

REPORT INFORMATION
  Report Type: 
  Country: None (occurrence: None)
  Receive Date: 20061212
  Receipt Date: 20061205
  Transmission Date: 20070319
  Serious: Yes (Hospitalization)
  Sender: FDA-Public Use
  Company Number: GR-BOEHRINGER INGELHEIM PHARMACEUTICALS, INC.-2006-DE-06547GD

PATIENT
  Age: 36 Year
  Sex: Male

DRUGS (5)
  1. NEVIRAPINE [Suspect]
     Indication: HIV INFECTION
     Dates: start: 20010101
  2. ZIDOVUDINE [Suspect]
     Indication: HIV INFECTION
     Dates: start: 20010101
  3. LAMIVUDINE [Suspect]
     Indication: HIV INFECTION
     Dates: start: 20010101
  4. SAQUINAVIR [Suspect]
     Indication: HIV INFECTION
  5. RITONAVIR [Suspect]
     Indication: HIV INFECTION

REACTIONS (7)
  - ABDOMINAL PAIN UPPER [None]
  - DYSPNOEA [None]
  - FATIGUE [None]
  - HYPERLACTACIDAEMIA [None]
  - METABOLIC ACIDOSIS [None]
  - NAUSEA [None]
  - TACHYPNOEA [None]
